FAERS Safety Report 24021263 (Version 1)
Quarter: 2024Q2

REPORT INFORMATION
  Report Type: Spontaneous
  Country: CN (occurrence: CN)
  Receive Date: 20240627
  Receipt Date: 20240627
  Transmission Date: 20240715
  Serious: Yes (Other)
  Sender: FDA-Public Use
  Company Number: CN-Eisai-EC-2024-168723

PATIENT
  Age: 86 Year
  Sex: Male
  Weight: 70 kg

DRUGS (3)
  1. RABEPRAZOLE [Suspect]
     Active Substance: RABEPRAZOLE
     Indication: Hyperchlorhydria
     Route: 048
     Dates: start: 20230317, end: 20230412
  2. FLUCONAZOLE [Suspect]
     Active Substance: FLUCONAZOLE
     Indication: Pathogen resistance
     Dosage: FREQUENCY UNKNOWN
     Route: 041
     Dates: start: 20230317, end: 20230327
  3. ESOMEPRAZOLE [Concomitant]
     Active Substance: ESOMEPRAZOLE
     Indication: Hyperchlorhydria
     Route: 042
     Dates: start: 20230314, end: 20230317

REACTIONS (1)
  - Drug-induced liver injury [Recovering/Resolving]

NARRATIVE: CASE EVENT DATE: 20230317
